FAERS Safety Report 9989250 (Version 3)
Quarter: 2014Q2

REPORT INFORMATION
  Report Type: Report from Study
  Country: CA (occurrence: CA)
  Receive Date: 20140310
  Receipt Date: 20140424
  Transmission Date: 20141212
  Serious: Yes (Hospitalization, Other)
  Sender: FDA-Public Use
  Company Number: CA-UCBSA-109961

PATIENT
  Age: 33 Year
  Sex: Female

DRUGS (5)
  1. CIMZIA [Suspect]
     Indication: RHEUMATOID ARTHRITIS
     Route: 058
     Dates: start: 20131220
  2. CALCIUM [Concomitant]
     Indication: MINERAL SUPPLEMENTATION
     Route: 048
     Dates: start: 201306
  3. MATERNA [Concomitant]
     Indication: VITAMIN SUPPLEMENTATION
     Dosage: 1CO
     Route: 048
     Dates: start: 201306
  4. TYLENOL [Concomitant]
     Indication: PAIN
     Dosage: PRN(AS NEEDED)
     Route: 048
  5. PREDNISONE [Concomitant]
     Indication: PAIN
     Route: 048
     Dates: start: 201310

REACTIONS (3)
  - Premature delivery [Recovered/Resolved]
  - Headache [Recovered/Resolved]
  - Exposure during pregnancy [Recovered/Resolved]
